FAERS Safety Report 4427659-7 (Version None)
Quarter: 2004Q3

REPORT INFORMATION
  Report Type: 
  Country: None (occurrence: None)
  Receive Date: 20040812
  Receipt Date: 20040806
  Transmission Date: 20050211
  Serious: Yes (Death)
  Sender: FDA-Public Use
  Company Number: 2004UW16810

PATIENT
  Sex: Male

DRUGS (2)
  1. SEROQUEL [Suspect]
  2. AMITRIPTYLINE HCL [Suspect]
     Dosage: OVERDOSE

REACTIONS (3)
  - CARDIAC ARREST [None]
  - CARDIOVASCULAR DISORDER [None]
  - OVERDOSE [None]
